FAERS Safety Report 10795157 (Version 4)
Quarter: 2015Q1

REPORT INFORMATION
  Report Type: Spontaneous
  Country: US (occurrence: US)
  Receive Date: 20150214
  Receipt Date: 20150306
  Transmission Date: 20150721
  Serious: No
  Sender: FDA-Public Use
  Company Number: US-TEVA-540196USA

PATIENT
  Age: 68 Year
  Sex: Female
  Weight: 90.8 kg

DRUGS (6)
  1. TRAMADOL [Concomitant]
     Active Substance: TRAMADOL
     Indication: PAIN
  2. HYDROCODONE [Concomitant]
     Active Substance: HYDROCODONE
     Indication: PAIN
  3. LYRICA [Concomitant]
     Active Substance: PREGABALIN
     Indication: FIBROMYALGIA
  4. SEROQUEL [Concomitant]
     Active Substance: QUETIAPINE FUMARATE
     Indication: INSOMNIA
  5. PROVIGIL [Suspect]
     Active Substance: MODAFINIL
     Indication: SLEEP APNOEA SYNDROME
     Dosage: 400 MILLIGRAM DAILY;
     Route: 048
     Dates: end: 20150131
  6. MODAFINIL. [Suspect]
     Active Substance: MODAFINIL

REACTIONS (6)
  - Female orgasmic disorder [Recovered/Resolved]
  - Somnolence [Unknown]
  - Vaginismus [Recovered/Resolved]
  - Drug ineffective [Unknown]
  - Crying [Unknown]
  - Hypersomnia [Unknown]

NARRATIVE: CASE EVENT DATE: 20150114
